FAERS Safety Report 7473882-7 (Version None)
Quarter: 2011Q2

REPORT INFORMATION
  Report Type: 
  Country: None (occurrence: None)
  Receive Date: 20110511
  Receipt Date: 20110427
  Transmission Date: 20111010
  Serious: Yes (Hospitalization)
  Sender: FDA-Public Use
  Company Number: HR-JNJFOC-20110412428

PATIENT
  Sex: Female
  Weight: 79 kg

DRUGS (17)
  1. ETOPOSIDE [Concomitant]
     Route: 042
  2. ETOPOSIDE [Concomitant]
     Route: 042
  3. REMICADE [Suspect]
     Indication: STILL'S DISEASE ADULT ONSET
     Route: 042
  4. DEPAKENE [Concomitant]
     Indication: EPILEPSY
     Dosage: 2 X 500 MG IN THE EVENING
     Route: 048
  5. ETOPOSIDE [Concomitant]
     Route: 042
  6. CYCLOSPORINE [Concomitant]
     Indication: STILL'S DISEASE ADULT ONSET
  7. CYCLOSPORINE [Concomitant]
  8. SOLU-MEDROL [Concomitant]
     Indication: STILL'S DISEASE ADULT ONSET
     Dosage: 70 MG IN THE MORNING AND 8 MG IN THE EVENING
     Route: 042
  9. ETOPOSIDE [Concomitant]
     Route: 042
  10. ETOPOSIDE [Concomitant]
     Route: 042
  11. CALCIUM [Concomitant]
     Indication: OSTEOPOROSIS PROPHYLAXIS
  12. ETOPOSIDE [Concomitant]
     Indication: HISTIOCYTOSIS HAEMATOPHAGIC
     Route: 042
  13. COLECALCIFEROL [Concomitant]
     Indication: OSTEOPOROSIS PROPHYLAXIS
     Dosage: 3 DROPS - 600 IJ
  14. KEPPRA [Concomitant]
     Indication: EPILEPSY
     Dosage: 500 MG IN MORNING AND 500 MG IN EVENING
     Route: 048
  15. ETOPOSIDE [Concomitant]
     Route: 042
  16. CONTROLOC [Concomitant]
     Indication: PROPHYLAXIS AGAINST GASTROINTESTINAL ULCER
     Route: 048
  17. SOLU-MEDROL [Concomitant]
     Dosage: 60 MG IN THE MORNING AND 4 MG IN THE EVENING
     Route: 042

REACTIONS (2)
  - OFF LABEL USE [None]
  - VASCULITIS [None]
